FAERS Safety Report 23053465 (Version 1)
Quarter: 2023Q4

REPORT INFORMATION
  Report Type: Spontaneous
  Country: GB (occurrence: GB)
  Receive Date: 20231011
  Receipt Date: 20231011
  Transmission Date: 20240109
  Serious: Yes (Other)
  Sender: FDA-Public Use
  Company Number: None

PATIENT
  Age: 34 Year

DRUGS (6)
  1. METHYLPHENIDATE [Suspect]
     Active Substance: METHYLPHENIDATE
     Indication: Product used for unknown indication
     Dosage: ONE 10 MG TABLET ALONG WITH ONE 5 MG TABLET
     Route: 065
  2. CODEINE [Concomitant]
     Active Substance: CODEINE
     Indication: Pain
     Dosage: 15 MG, QD, 1 OR 2 UP TO FOUR TIMES DAILY
     Route: 065
     Dates: start: 20230123
  3. LANSOPRAZOLE [Concomitant]
     Active Substance: LANSOPRAZOLE
     Indication: Product used for unknown indication
     Dosage: 30 MG, BID, REDUCING TO DAILY AFTER A WEEK
     Route: 065
     Dates: start: 20230123
  4. MIRTAZAPINE [Concomitant]
     Active Substance: MIRTAZAPINE
     Indication: Panic disorder
     Dosage: 15 MG, QD, AT NIGHT
     Route: 065
  5. ACETAMINOPHEN [Concomitant]
     Active Substance: ACETAMINOPHEN
     Indication: Product used for unknown indication
     Dosage: 500 MG, QD,BE TAKEN EVERY 4-6 HOURS UP TO FOUR TIMES A DAY
     Route: 065
     Dates: start: 20230123
  6. PROPRANOLOL [Concomitant]
     Active Substance: PROPRANOLOL HYDROCHLORIDE
     Indication: Product used for unknown indication
     Dosage: DEC 2022 CLINIC LETTER STATES STOPPED - TBC WHENABLE - PATIENT DIDN^T STOP - STOPPED ON BISOP
     Route: 065

REACTIONS (2)
  - Cardiomyopathy [Unknown]
  - Myocarditis [Unknown]
